FAERS Safety Report 22125731 (Version 6)
Quarter: 2024Q3

REPORT INFORMATION
  Report Type: Spontaneous
  Country: FR (occurrence: FR)
  Receive Date: 20230322
  Receipt Date: 20240807
  Transmission Date: 20241016
  Serious: Yes (Other)
  Sender: ROCHE
  Company Number: None

PATIENT
  Age: 72 Year
  Sex: Female
  Weight: 59 kg

DRUGS (6)
  1. XELODA [Suspect]
     Active Substance: CAPECITABINE
     Indication: Breast cancer
     Dosage: XELODA 1500 MG MORNING AND EVENING; REATMENT RENEWED: XELODA 1000 MG MORNING AND EVENING FROM DAY1 (
     Route: 048
     Dates: start: 20221116
  2. HERCEPTIN [Suspect]
     Active Substance: TRASTUZUMAB
     Indication: Breast cancer
     Route: 065
     Dates: start: 20221116
  3. TUKYSA [Suspect]
     Active Substance: TUCATINIB
     Indication: HER2 positive breast cancer
     Dosage: 2ND CYCLE XELODA-TUKYSA-HERCEPTIN IN 5TH LINE, 300 MG  AT MORNING AND EVENING
     Route: 065
     Dates: start: 20221116
  4. TUKYSA [Suspect]
     Active Substance: TUCATINIB
     Indication: Breast cancer
     Dosage: 4TH CYCLE OF XELODA-TUKYSA-HERCEPTIN
     Route: 065
     Dates: start: 20230105
  5. TUKYSA [Suspect]
     Active Substance: TUCATINIB
     Dosage: 3RD CYCLE OF XELODA-TUKYSA-HERCEPTIN IN 5TH LINE
     Route: 065
     Dates: start: 20221207
  6. TUKYSA [Suspect]
     Active Substance: TUCATINIB
     Dosage: 300 MG, MORNING AND EVENING
     Route: 065
     Dates: start: 20221026, end: 20221207

REACTIONS (16)
  - Lymphoedema [Unknown]
  - Dyspepsia [Recovered/Resolved]
  - Rales [Unknown]
  - Blood lactate dehydrogenase abnormal [Unknown]
  - Carcinoembryonic antigen increased [Unknown]
  - Oxygen saturation decreased [Unknown]
  - Aortic valve incompetence [Recovering/Resolving]
  - Hyperbilirubinaemia [Recovering/Resolving]
  - Fatigue [Recovering/Resolving]
  - Gamma-glutamyltransferase abnormal [Unknown]
  - Lymphopenia [Recovering/Resolving]
  - Diarrhoea [Recovering/Resolving]
  - Cell death [Recovering/Resolving]
  - Blood lactate dehydrogenase increased [Unknown]
  - Palmar-plantar erythrodysaesthesia syndrome [Recovered/Resolved]
  - Aortic valve incompetence [Recovering/Resolving]

NARRATIVE: CASE EVENT DATE: 20221116
